FAERS Safety Report 6754443-1 (Version None)
Quarter: 2010Q2

REPORT INFORMATION
  Report Type: 
  Country: None (occurrence: None)
  Receive Date: 20100603
  Receipt Date: 20100525
  Transmission Date: 20101027
  Serious: Yes (Other)
  Sender: FDA-Public Use
  Company Number: PHHY2010US12641

PATIENT
  Sex: Male
  Weight: 30.5 kg

DRUGS (6)
  1. EXJADE [Suspect]
     Indication: IRON OVERLOAD
     Dosage: UNK
     Route: 048
     Dates: start: 20090201, end: 20091110
  2. EXJADE [Suspect]
     Dosage: 750 MG, QD
     Route: 048
     Dates: start: 20091110
  3. FOLIC ACID [Concomitant]
     Indication: ANAEMIA
     Dosage: 1 MG, QD
     Route: 048
  4. AMOXICILLIN [Concomitant]
     Indication: PROPHYLAXIS
     Dosage: 250 MG, BID
     Route: 048
  5. ALBUTEROL [Concomitant]
     Dosage: UNK
  6. CARAFATE [Concomitant]
     Dosage: UNK
     Dates: start: 20100201

REACTIONS (5)
  - ABDOMINAL PAIN [None]
  - GASTROENTERITIS [None]
  - SPLENECTOMY [None]
  - SPLENIC VARICES [None]
  - SPLENOMEGALY [None]
